FAERS Safety Report 9230355 (Version 1)
Quarter: 2013Q2

REPORT INFORMATION
  Report Type: Spontaneous
  Country: GB (occurrence: None)
  Receive Date: 20130411
  Receipt Date: 20130411
  Transmission Date: 20140414
  Serious: Yes (Death, Other)
  Sender: FDA-Public Use
  Company Number: E2B_00000714

PATIENT
  Age: 69 Year
  Sex: Male

DRUGS (5)
  1. SIMVASTATIN [Suspect]
     Indication: PRODUCT USED FOR UNKNOWN INDICATION
     Route: 048
     Dates: start: 2011, end: 20130304
  2. ZOLEDRONIC ACID [Concomitant]
  3. DOCETAXEL [Concomitant]
  4. GOSERELIN + GOSERELIN ACETATE (ZOLADEX) [Concomitant]
  5. LORATADINE [Concomitant]

REACTIONS (14)
  - Blood pH decreased [None]
  - PCO2 decreased [None]
  - Blood potassium increased [None]
  - Blood urea increased [None]
  - Blood creatinine increased [None]
  - Blood bilirubin increased [None]
  - Blood calcium decreased [None]
  - White blood cell count increased [None]
  - Haemoglobin decreased [None]
  - Neutrophil count increased [None]
  - Alanine aminotransferase increased [None]
  - Blood alkaline phosphatase increased [None]
  - Pyrexia [None]
  - International normalised ratio increased [None]
